FAERS Safety Report 17026860 (Version 1)
Quarter: 2019Q4

REPORT INFORMATION
  Report Type: Spontaneous
  Country: US (occurrence: US)
  Receive Date: 20191113
  Receipt Date: 20191113
  Transmission Date: 20200122
  Serious: No
  Sender: FDA-Public Use
  Company Number: NVSC2019US032317

PATIENT
  Age: 10 Month
  Sex: Male

DRUGS (2)
  1. TOPOTECAN [Suspect]
     Active Substance: TOPOTECAN HYDROCHLORIDE
     Indication: RETINOBLASTOMA
     Dosage: UNK (20 MCG/0.1CC)
     Route: 031
  2. MELPHALAN. [Suspect]
     Active Substance: MELPHALAN
     Indication: RETINOBLASTOMA
     Dosage: UNK (20 MCG/0.1CC)
     Route: 031

REACTIONS (2)
  - Product use in unapproved indication [Unknown]
  - Heterochromia iridis [Unknown]
